FAERS Safety Report 8821334 (Version 3)
Quarter: 2013Q2

REPORT INFORMATION
  Report Type: Spontaneous
  Country: US (occurrence: US)
  Receive Date: 20121002
  Receipt Date: 20130409
  Transmission Date: 20140414
  Serious: Yes (Other)
  Sender: FDA-Public Use
  Company Number: US-BAYER-2012-100824

PATIENT
  Age: 33 Year
  Sex: Female
  Weight: 72 kg

DRUGS (1)
  1. MIRENA [Suspect]
     Indication: CONTRACEPTION
     Dosage: 20 MCG/24HR, CONT
     Route: 015
     Dates: start: 20110513, end: 20120406

REACTIONS (6)
  - Genital haemorrhage [Recovered/Resolved]
  - Genital haemorrhage [Recovered/Resolved]
  - Adnexa uteri pain [Recovered/Resolved]
  - Dyspareunia [Recovered/Resolved]
  - Coital bleeding [Recovered/Resolved]
  - Pelvic discomfort [Recovered/Resolved]
